FAERS Safety Report 9645317 (Version 1)
Quarter: 2013Q4

REPORT INFORMATION
  Report Type: Spontaneous
  Country: US (occurrence: US)
  Receive Date: 20131025
  Receipt Date: 20131025
  Transmission Date: 20140711
  Serious: Yes (Other)
  Sender: FDA-Public Use
  Company Number: US-BAYER-2013-127843

PATIENT
  Sex: Female

DRUGS (2)
  1. MIRENA [Suspect]
     Dosage: 20 MCG/24HR, CONT
     Route: 015
     Dates: start: 20130528
  2. INSULIN [Concomitant]
     Indication: DIABETES MELLITUS

REACTIONS (10)
  - Procedural pain [None]
  - Anxiety [Recovering/Resolving]
  - Palpitations [Recovering/Resolving]
  - Dizziness [Recovering/Resolving]
  - Headache [Recovering/Resolving]
  - Tremor [Recovering/Resolving]
  - Hot flush [Recovering/Resolving]
  - Hypertension [None]
  - Depression [None]
  - Hypomenorrhoea [None]
